FAERS Safety Report 7576851-1 (Version None)
Quarter: 2011Q2

REPORT INFORMATION
  Report Type: 
  Country: None (occurrence: None)
  Receive Date: 20110628
  Receipt Date: 20090930
  Transmission Date: 20111010
  Serious: Yes (Death, Other)
  Sender: FDA-Public Use
  Company Number: US-BAYER-2011-009226

PATIENT
  Age: 63 Year
  Sex: Male
  Weight: 127 kg

DRUGS (11)
  1. LASIX [Concomitant]
     Dosage: 20 MG, QD
     Dates: start: 20070522
  2. BENAZEPRIL HYDROCHLORIDE [Concomitant]
     Dosage: 40 MG, QD
     Dates: start: 20070209
  3. HEPARIN [Concomitant]
  4. METFORMIN HCL [Concomitant]
     Dosage: 1 GM BID
     Dates: start: 20070522
  5. TRICOR [Concomitant]
     Dosage: 145 MG, QD
     Dates: start: 20070522
  6. ZOCOR [Concomitant]
     Dosage: 20 MG, QD
     Dates: start: 20070522
  7. LANTUS [Concomitant]
     Dosage: 20 U, HS
     Route: 058
     Dates: start: 20070522
  8. TRASYLOL [Suspect]
     Indication: CORONARY ARTERY BYPASS
     Dosage: 1 ML TEST DOSE
     Route: 042
     Dates: start: 20070825
  9. PROTAMINE SULFATE [Concomitant]
  10. GLIPIZIDE [Concomitant]
     Dosage: 10 MG, BID
     Dates: start: 20070522
  11. HYDROCHLOROTHIAZIDE [Concomitant]
     Dosage: 25 MG, QD
     Dates: start: 20070522

REACTIONS (12)
  - RENAL INJURY [None]
  - FEAR [None]
  - NERVOUSNESS [None]
  - EMOTIONAL DISTRESS [None]
  - MULTI-ORGAN FAILURE [None]
  - ANXIETY [None]
  - INJURY [None]
  - PAIN [None]
  - FEAR OF DEATH [None]
  - DEPRESSION [None]
  - RENAL FAILURE [None]
  - UNEVALUABLE EVENT [None]
